FAERS Safety Report 8025906-6 (Version None)
Quarter: 2012Q1

REPORT INFORMATION
  Report Type: 
  Country: None (occurrence: None)
  Receive Date: 20120105
  Receipt Date: 20111223
  Transmission Date: 20120608
  Serious: Yes (Hospitalization)
  Sender: FDA-Public Use
  Company Number: FR-ROCHE-1025222

PATIENT
  Age: 93 Year
  Sex: Male

DRUGS (5)
  1. ZOLPIDEM [Concomitant]
  2. FLAGYL [Concomitant]
  3. LOVENOX [Concomitant]
  4. MODOPAR [Suspect]
     Indication: PRODUCT USED FOR UNKNOWN INDICATION
  5. CEFTRIAXONE [Suspect]
     Indication: PNEUMONIA ASPIRATION

REACTIONS (2)
  - CYTOLYTIC HEPATITIS [None]
  - PROTHROMBIN LEVEL DECREASED [None]
